FAERS Safety Report 10045032 (Version 1)
Quarter: 2014Q1

REPORT INFORMATION
  Report Type: Spontaneous
  Country: GB (occurrence: None)
  Receive Date: 20140326
  Receipt Date: 20140326
  Transmission Date: 20141002
  Serious: Yes (Other)
  Sender: FDA-Public Use
  Company Number: GB2014K0838SPO

PATIENT
  Age: 74 Year
  Sex: Female

DRUGS (5)
  1. LANSOPRAZOLE [Suspect]
     Indication: GASTROOESOPHAGEAL REFLUX DISEASE
     Dosage: 8 DAYS, 30 MG, 1X PER DAY; ORAL
     Route: 048
     Dates: start: 20140206, end: 20140213
  2. GAVISON (ALGINIC ACID, ALUMINIUM HYDROXIDE, ALUMINIUM HYDROXIDE GEL, ALU [Concomitant]
  3. LAMOTRIGINE (LAMOTRIGINE); UNKNOWN [Concomitant]
  4. LEVOTHYROXINE (LEVOTHYROXINE), UNKNOWN [Concomitant]
  5. SIMVASTATIN (SIMVASTATIN), UNKNOWN [Concomitant]

REACTIONS (5)
  - Liver function test abnormal [None]
  - Decreased appetite [None]
  - Malaise [None]
  - Lethargy [None]
  - Fatigue [None]
